FAERS Safety Report 12737183 (Version 1)
Quarter: 2016Q3

REPORT INFORMATION
  Report Type: Spontaneous
  Country: FR (occurrence: FR)
  Receive Date: 20160912
  Receipt Date: 20160912
  Transmission Date: 20161109
  Serious: Yes (Hospitalization, Other)
  Sender: FDA-Public Use
  Company Number: FR-UCBSA-2016031125

PATIENT
  Age: 43 Year
  Sex: Female

DRUGS (2)
  1. KETOPROFENE [Concomitant]
     Active Substance: KETOPROFEN
     Indication: SPONDYLITIS
     Dosage: 100 MG, 2X/DAY (BID)
     Route: 048
     Dates: start: 2012, end: 201603
  2. CIMZIA [Suspect]
     Active Substance: CERTOLIZUMAB PEGOL
     Indication: AXIAL SPONDYLOARTHRITIS
     Dosage: 200 MG, EV 2 WEEKS(QOW)
     Route: 058
     Dates: start: 201507, end: 201603

REACTIONS (3)
  - Pulmonary mass [Unknown]
  - Renal failure [Recovering/Resolving]
  - Granuloma [Not Recovered/Not Resolved]

NARRATIVE: CASE EVENT DATE: 201601
